FAERS Safety Report 16359962 (Version 1)
Quarter: 2019Q2

REPORT INFORMATION
  Report Type: Spontaneous
  Country: FR (occurrence: FR)
  Receive Date: 20190528
  Receipt Date: 20190528
  Transmission Date: 20190711
  Serious: Yes (Hospitalization)
  Sender: FDA-Public Use
  Company Number: FR-TEVA-2019-FR-1055276

PATIENT
  Age: 37 Year
  Sex: Male

DRUGS (6)
  1. IMETH 10 MG, COMPRIM? S?CABLE [Suspect]
     Active Substance: METHOTREXATE
     Indication: PSORIASIS
     Dosage: 2 TABLETS OF 10MG, ONCE A WEEK ON TUESDAYS
     Route: 048
     Dates: start: 20181215, end: 20190420
  2. BETNEVAL 0,1 POUR CENT, CR?ME [Concomitant]
     Indication: PSORIASIS
     Dosage: 1 APPLICATION PER DAY IN THE EVENING
     Route: 003
  3. AMOXICILLINE BASE [Suspect]
     Active Substance: AMOXICILLIN
     Indication: TONSILLITIS
     Route: 048
     Dates: start: 20190416
  4. ATARAX [Concomitant]
     Active Substance: HYDROXYZINE HYDROCHLORIDE
     Indication: POST-TRAUMATIC STRESS DISORDER
     Dosage: 25 MILLIGRAM DAILY; 25MG AT BEDTIME
  5. DAIVOBET 50 MICROGRAMMES/0,5 MG/G, POMMADE [Concomitant]
     Indication: PSORIASIS
     Dosage: 4 TUBES PER MONTHS
     Route: 003
  6. SPECIAFOLDINE 5 MG, COMPRIM? [Concomitant]
     Active Substance: FOLIC ACID
     Indication: ANAEMIA
     Dosage: 2 TABLETS OF 5MG, 1 TIME PER WEEK ON THURSDAY MORNING
     Route: 048

REACTIONS (2)
  - Stomatitis [Recovering/Resolving]
  - Pancytopenia [Recovering/Resolving]

NARRATIVE: CASE EVENT DATE: 20190416
